FAERS Safety Report 13780915 (Version 6)
Quarter: 2019Q3

REPORT INFORMATION
  Report Type: Report from Study
  Country: None (occurrence: US)
  Receive Date: 20170724
  Receipt Date: 20190709
  Transmission Date: 20191004
  Serious: Yes (Hospitalization, Other)
  Sender: FDA-Public Use
  Company Number: US-ABBVIE-17K-163-2043736-00

PATIENT
  Age: 55 Year
  Sex: Female

DRUGS (3)
  1. PREDNISONE. [Concomitant]
     Active Substance: PREDNISONE
     Indication: PRODUCT USED FOR UNKNOWN INDICATION
  2. METHOTREXATE. [Concomitant]
     Active Substance: METHOTREXATE
     Indication: PRODUCT USED FOR UNKNOWN INDICATION
  3. HUMIRA [Suspect]
     Active Substance: ADALIMUMAB
     Indication: RHEUMATOID ARTHRITIS
     Route: 058

REACTIONS (15)
  - Musculoskeletal pain [Not Recovered/Not Resolved]
  - Bone pain [Unknown]
  - Gastrectomy [Unknown]
  - Hernia [Unknown]
  - Pain in extremity [Unknown]
  - Diabetes mellitus [Unknown]
  - Weight decreased [Unknown]
  - Post procedural complication [Unknown]
  - Dyspepsia [Unknown]
  - Injection site pain [Unknown]
  - Anal fissure [Unknown]
  - Anorectal operation [Unknown]
  - Peripheral swelling [Unknown]
  - Sleep apnoea syndrome [Unknown]
  - Spinal stenosis [Unknown]

NARRATIVE: CASE EVENT DATE: 201707
